FAERS Safety Report 10599986 (Version 1)
Quarter: 2014Q4

REPORT INFORMATION
  Report Type: Spontaneous
  Country: CH (occurrence: CH)
  Receive Date: 20141121
  Receipt Date: 20141121
  Transmission Date: 20150529
  Serious: Yes (Other)
  Sender: FDA-Public Use
  Company Number: CH-ABBVIE-14K-151-1310842-00

PATIENT
  Sex: Male

DRUGS (2)
  1. HUMIRA [Suspect]
     Active Substance: ADALIMUMAB
     Dosage: ACCORDING TO SCHEME
     Route: 058
     Dates: end: 201411
  2. HUMIRA [Suspect]
     Active Substance: ADALIMUMAB
     Indication: CROHN^S DISEASE
     Dosage: INDUCTION DOSE
     Route: 058
     Dates: start: 201311, end: 201311

REACTIONS (1)
  - Malignant melanoma [Unknown]
